FAERS Safety Report 19219835 (Version 2)
Quarter: 2021Q2

REPORT INFORMATION
  Report Type: Report from Study
  Country: CA (occurrence: CA)
  Receive Date: 20210505
  Receipt Date: 20210507
  Transmission Date: 20210717
  Serious: Yes (Death, Other)
  Sender: FDA-Public Use
  Company Number: CA-HLS-202001020

PATIENT
  Age: 62 Year
  Sex: Male

DRUGS (2)
  1. CLOZARIL [Suspect]
     Active Substance: CLOZAPINE
     Indication: PRODUCT USED FOR UNKNOWN INDICATION
     Route: 048
     Dates: start: 19950920, end: 20210430
  2. CLOZARIL [Suspect]
     Active Substance: CLOZAPINE
     Indication: PRODUCT USED FOR UNKNOWN INDICATION
     Route: 048
     Dates: start: 19950920

REACTIONS (2)
  - Pneumonia [Unknown]
  - Cardiac failure congestive [Fatal]

NARRATIVE: CASE EVENT DATE: 20210403
